FAERS Safety Report 14569658 (Version 1)
Quarter: 2018Q1

REPORT INFORMATION
  Report Type: Report from Study
  Country: CA (occurrence: CA)
  Receive Date: 20180224
  Receipt Date: 20180224
  Transmission Date: 20180509
  Serious: Yes (Other)
  Sender: FDA-Public Use
  Company Number: CA-AMGEN-CANSL2018024312

PATIENT
  Age: 81 Year
  Sex: Female

DRUGS (6)
  1. CELEBREX [Concomitant]
     Active Substance: CELECOXIB
  2. ADVIL [Concomitant]
     Active Substance: IBUPROFEN
     Dosage: 600 MG, UNK
  3. CODEINE [Concomitant]
     Active Substance: CODEINE
  4. MULTIVITAMINS [Concomitant]
     Active Substance: VITAMINS
  5. PROLIA [Suspect]
     Active Substance: DENOSUMAB
     Indication: PRODUCT USED FOR UNKNOWN INDICATION
     Dosage: 60 MG/ML, UNK
     Route: 065
     Dates: start: 20170302
  6. OMEGA 3 [Concomitant]
     Active Substance: OMEGA-3 FATTY ACIDS

REACTIONS (8)
  - Swollen tongue [Unknown]
  - Neuritis [Recovered/Resolved]
  - Sleep disorder due to general medical condition, insomnia type [Unknown]
  - Arthritis [Unknown]
  - Glossodynia [Unknown]
  - Adverse event [Unknown]
  - Lip swelling [Unknown]
  - Lip pain [Unknown]

NARRATIVE: CASE EVENT DATE: 2017
